FAERS Safety Report 9019710 (Version 3)
Quarter: 2013Q2

REPORT INFORMATION
  Report Type: Spontaneous
  Country: CA (occurrence: CA)
  Receive Date: 20130118
  Receipt Date: 20130515
  Transmission Date: 20140414
  Serious: Yes (Hospitalization, Other)
  Sender: FDA-Public Use
  Company Number: CA-ROCHE-1180723

PATIENT
  Age: 22 Year
  Sex: Female

DRUGS (10)
  1. XOLAIR [Suspect]
     Indication: ASTHMA
     Route: 058
     Dates: start: 20130109
  2. XOLAIR [Suspect]
     Route: 065
     Dates: start: 20130501
  3. KETOTIFEN [Concomitant]
  4. MONTELUKAST [Concomitant]
  5. CETIRIZINE [Concomitant]
  6. SYMBICORT [Concomitant]
  7. PANTOPRAZOLE [Concomitant]
  8. RANITIDINE [Concomitant]
  9. DILTIAZEM [Concomitant]
  10. HIZENTRA [Concomitant]

REACTIONS (8)
  - Dyspnoea [Unknown]
  - Urticaria [Unknown]
  - Anaphylactic reaction [Recovered/Resolved]
  - Asthma [Recovered/Resolved]
  - Wheezing [Recovered/Resolved]
  - Stridor [Recovered/Resolved]
  - Flushing [Recovered/Resolved]
  - Erythema [Recovered/Resolved]
